FAERS Safety Report 25133741 (Version 1)
Quarter: 2025Q1

REPORT INFORMATION
  Report Type: Report from Study
  Country: TW (occurrence: TW)
  Receive Date: 20250328
  Receipt Date: 20250328
  Transmission Date: 20250409
  Serious: Yes (Other)
  Sender: ROCHE
  Company Number: TW-002147023-NVSC2023TW074599

PATIENT
  Age: 72 Year
  Sex: Female

DRUGS (1)
  1. LUCENTIS [Suspect]
     Active Substance: RANIBIZUMAB
     Indication: Retinal vein occlusion
     Route: 047
     Dates: start: 2022

REACTIONS (2)
  - Visual acuity reduced [Unknown]
  - Optical coherence tomography abnormal [Unknown]

NARRATIVE: CASE EVENT DATE: 20230308
